FAERS Safety Report 19156177 (Version 1)
Quarter: 2021Q2

REPORT INFORMATION
  Report Type: Spontaneous
  Country: ES (occurrence: ES)
  Receive Date: 20210419
  Receipt Date: 20210419
  Transmission Date: 20210717
  Serious: Yes (Hospitalization)
  Sender: FDA-Public Use
  Company Number: ES-FERRINGPH-2021FE02245

PATIENT
  Sex: Male

DRUGS (1)
  1. MINURIN [Suspect]
     Active Substance: DESMOPRESSIN ACETATE
     Indication: DIABETES INSIPIDUS
     Dosage: UNK
     Route: 045

REACTIONS (2)
  - Drug ineffective [Unknown]
  - Blood sodium increased [Unknown]
